FAERS Safety Report 10263519 (Version 4)
Quarter: 2014Q3

REPORT INFORMATION
  Report Type: Spontaneous
  Country: IT (occurrence: IT)
  Receive Date: 20140626
  Receipt Date: 20140909
  Transmission Date: 20150326
  Serious: Yes (Hospitalization)
  Sender: FDA-Public Use
  Company Number: PHHY2014IT076378

PATIENT
  Age: 63 Year
  Sex: Male

DRUGS (11)
  1. CLOZAPINE. [Concomitant]
     Active Substance: CLOZAPINE
  2. FUROSEMIDE. [Interacting]
     Active Substance: FUROSEMIDE
     Indication: HYPERTENSION
     Dosage: 1 DF, QD
     Route: 048
     Dates: start: 20140101, end: 20140510
  3. BISOPROLOL [Suspect]
     Active Substance: BISOPROLOL
     Indication: HYPERTENSION
     Dosage: 1 DF, QD
     Route: 048
     Dates: start: 20140101, end: 20140510
  4. TOTALIP [Concomitant]
     Active Substance: ATORVASTATIN
     Dosage: 1 DF, UNK
     Route: 048
  5. CARDIOASPIRIN [Concomitant]
     Active Substance: ASPIRIN
     Dosage: 1 DF, UNK
     Route: 048
  6. CORLENTOR [Interacting]
     Active Substance: IVABRADINE HYDROCHLORIDE
     Indication: CARDIAC FAILURE
     Dosage: 3 DF, UNK
     Route: 048
     Dates: start: 20140101, end: 20140510
  7. RAMIPRIL. [Suspect]
     Active Substance: RAMIPRIL
     Indication: HYPERTENSION
     Dosage: 1 DF, QD
     Route: 048
     Dates: start: 20140101, end: 20140510
  8. LANSOX [Concomitant]
     Active Substance: LANSOPRAZOLE
     Dosage: 1 DF, UNK
     Route: 048
  9. LUVION [Interacting]
     Active Substance: CANRENONE
     Indication: HYPERTENSION
     Dosage: 1 DF, QD
     Route: 048
     Dates: start: 20140101, end: 20140510
  10. ESKIM [Concomitant]
     Active Substance: OMEGA-3 FATTY ACIDS
     Dosage: 1 DF, UNK
     Route: 046
  11. VANTAVO [Concomitant]
     Active Substance: ALENDRONATE SODIUM\CHOLECALCIFEROL
     Dosage: 1 DF, QW4

REACTIONS (6)
  - Insomnia [Unknown]
  - Cerebrovascular accident [Unknown]
  - Vertigo [Unknown]
  - Hypotension [Unknown]
  - Bradycardia [Unknown]
  - Disorientation [Unknown]

NARRATIVE: CASE EVENT DATE: 20140510
